FAERS Safety Report 5307923-X (Version None)
Quarter: 2007Q1

REPORT INFORMATION
  Report Type: 
  Country: None (occurrence: None)
  Receive Date: 20070201
  Receipt Date: 20061226
  Transmission Date: 20070707
  Serious: No
  Sender: FDA-Public Use
  Company Number: 2006PV027375

PATIENT
  Age: 68 Year
  Sex: Female
  Weight: 112.0385 kg

DRUGS (6)
  1. BYETTA [Suspect]
     Indication: DIABETES MELLITUS NON-INSULIN-DEPENDENT
     Dosage: SEE IMAGE
     Route: 058
     Dates: start: 20061104, end: 20061203
  2. BYETTA [Suspect]
     Indication: DIABETES MELLITUS NON-INSULIN-DEPENDENT
     Dosage: SEE IMAGE
     Route: 058
     Dates: start: 20061204
  3. METFORMIN HCL [Concomitant]
  4. GLIPIZIDE [Concomitant]
  5. CYCLOBENZAPRINE HCL [Concomitant]
  6. UNIRETIC [Concomitant]

REACTIONS (7)
  - DECREASED APPETITE [None]
  - DIARRHOEA [None]
  - INJECTION SITE BRUISING [None]
  - INJECTION SITE HAEMORRHAGE [None]
  - NAUSEA [None]
  - VOMITING [None]
  - WEIGHT DECREASED [None]
